FAERS Safety Report 5732473-6 (Version None)
Quarter: 2008Q2

REPORT INFORMATION
  Report Type: 
  Country: None (occurrence: None)
  Receive Date: 20080507
  Receipt Date: 20080429
  Transmission Date: 20081010
  Serious: Yes (Other)
  Sender: FDA-Public Use
  Company Number: TCI2008A01701

PATIENT
  Age: 64 Year
  Sex: Male
  Weight: 51 kg

DRUGS (6)
  1. LANSAP 400 (LANSOPRAZOLE, CLARITHROMYCIN, AMOXICILLIN) ( ORAL USE (NOS [Suspect]
     Indication: GASTRIC ULCER
     Dosage: 1 CARD (0.5 CARD,2 IN 1 D)  PER ORAL
     Route: 048
     Dates: start: 20070719, end: 20070726
  2. LANSAP 400 (LANSOPRAZOLE, CLARITHROMYCIN, AMOXICILLIN) ( ORAL USE (NOS [Suspect]
     Indication: HELICOBACTER INFECTION
     Dosage: 1 CARD (0.5 CARD,2 IN 1 D)  PER ORAL
     Route: 048
     Dates: start: 20070719, end: 20070726
  3. IRSOGLADINE MALEATE      (TABLETS) [Suspect]
     Indication: GASTRIC ULCER
     Dosage: 4 MG (4 MG, 1D),  PER ORAL
     Dates: start: 20070726, end: 20070913
  4. CRESTOR [Suspect]
     Indication: HYPERLIPIDAEMIA
     Dosage: 2.5 MG (2.5 MG, 1 D) PER ORAL
     Route: 048
     Dates: start: 20070726
  5. RABEPRAZOLE SODIUM [Suspect]
     Indication: GASTRIC ULCER
     Dosage: 10 MG (10 MG, 1 D)  PER ORAL
     Route: 048
     Dates: start: 20070914
  6. JUVELUX  (CAPSULES) [Suspect]
     Indication: CARDIOVASCULAR DISORDER
     Dosage: PER ORAL

REACTIONS (1)
  - GASTRIC CANCER [None]
